FAERS Safety Report 17209588 (Version 2)
Quarter: 2020Q1

REPORT INFORMATION
  Report Type: Report from Study
  Country: CA (occurrence: CA)
  Receive Date: 20191227
  Receipt Date: 20200115
  Transmission Date: 20200409
  Serious: Yes (Death, Life-Threatening, Hospitalization, Disabling, Other)
  Sender: FDA-Public Use
  Company Number: CA-JNJFOC-20191134395

PATIENT
  Age: 66 Year
  Sex: Male

DRUGS (1)
  1. STELARA [Suspect]
     Active Substance: USTEKINUMAB
     Indication: CROHN^S DISEASE
     Dosage: THE LAST DOSE WAS ADMINISTERED IN 23/DEC/2019
     Route: 058
     Dates: end: 20191223

REACTIONS (3)
  - Off label use [Unknown]
  - Product use issue [Unknown]
  - Soft tissue sarcoma [Fatal]

NARRATIVE: CASE EVENT DATE: 20191221
